FAERS Safety Report 9831116 (Version 2)
Quarter: 2015Q4

REPORT INFORMATION
  Report Type: Report from Study
  Country: US (occurrence: US)
  Receive Date: 20140121
  Receipt Date: 20151019
  Transmission Date: 20160305
  Serious: Yes (Hospitalization, Disabling, Other)
  Sender: FDA-Public Use
  Company Number: US-ROCHE-1333582

PATIENT
  Sex: Male
  Weight: 101.24 kg

DRUGS (18)
  1. XOLAIR [Suspect]
     Active Substance: OMALIZUMAB
     Indication: ASTHMA
     Route: 058
  2. SPIRIVA [Concomitant]
     Active Substance: TIOTROPIUM BROMIDE MONOHYDRATE
     Route: 065
     Dates: start: 201307
  3. QVAR [Concomitant]
     Active Substance: BECLOMETHASONE DIPROPIONATE
     Indication: ASTHMA
     Dosage: 2 PUFFS
     Route: 065
  4. TYLENOL [Concomitant]
     Active Substance: ACETAMINOPHEN
     Dosage: 4-6 TIMES A DAY
     Route: 065
  5. PROVENTIL HFA [Concomitant]
     Active Substance: ALBUTEROL SULFATE
     Dosage: 2 PUFFS EVERY 4-6 HOURS AS NEEDED
     Route: 065
  6. SPIRIVA [Concomitant]
     Active Substance: TIOTROPIUM BROMIDE MONOHYDRATE
     Route: 065
  7. DULERA [Concomitant]
     Active Substance: FORMOTEROL FUMARATE DIHYDRATE\MOMETASONE FUROATE
     Dosage: 2 PUFFS
     Route: 065
  8. PRILOSEC [Concomitant]
     Active Substance: OMEPRAZOLE MAGNESIUM
     Route: 065
  9. QNASL [Concomitant]
     Active Substance: BECLOMETHASONE DIPROPIONATE
     Route: 065
     Dates: start: 201307
  10. XOLAIR [Suspect]
     Active Substance: OMALIZUMAB
     Indication: ASTHMA
     Dosage: 1 EVERY OTHER WEEK
     Route: 058
  11. DULERA [Concomitant]
     Active Substance: FORMOTEROL FUMARATE DIHYDRATE\MOMETASONE FUROATE
     Dosage: TWO SPRAYS?200/5 MCG
     Route: 065
     Dates: start: 201307
  12. ZYRTEC [Concomitant]
     Active Substance: CETIRIZINE HYDROCHLORIDE
  13. XOLAIR [Suspect]
     Active Substance: OMALIZUMAB
     Indication: ASTHMA
     Route: 058
  14. XOLAIR [Suspect]
     Active Substance: OMALIZUMAB
     Indication: IMMUNE SYSTEM DISORDER
     Dosage: ONE DOSE IS LARGER THN THE OTHER DOSE
     Route: 058
     Dates: end: 201307
  15. PROZAC [Concomitant]
     Active Substance: FLUOXETINE HYDROCHLORIDE
     Indication: ANXIETY
     Route: 065
     Dates: start: 2012
  16. SEROQUEL [Concomitant]
     Active Substance: QUETIAPINE FUMARATE
     Dosage: 3 MONTHS AGO
     Route: 065
  17. CLARITIN [Concomitant]
     Active Substance: LORATADINE
  18. QVAR [Concomitant]
     Active Substance: BECLOMETHASONE DIPROPIONATE
     Dosage: 4 SPRAYS A DAY
     Route: 065
     Dates: start: 201307

REACTIONS (24)
  - Rib fracture [Unknown]
  - Cough [Unknown]
  - Skull fracture [Unknown]
  - Dyspnoea [Not Recovered/Not Resolved]
  - Pain of skin [Unknown]
  - Asthma [Unknown]
  - Nasopharyngitis [Unknown]
  - Off label use [Unknown]
  - Blindness [Unknown]
  - Immunodeficiency [Unknown]
  - Hip fracture [Unknown]
  - Contusion [Unknown]
  - Stress [Unknown]
  - Lower limb fracture [Unknown]
  - Exostosis [Unknown]
  - Ankle fracture [Unknown]
  - Eosinophil count increased [Unknown]
  - Headache [Unknown]
  - Upper limb fracture [Unknown]
  - Visual acuity reduced [Not Recovered/Not Resolved]
  - Hiatus hernia [Unknown]
  - Hypertension [Unknown]
  - Bronchitis [Unknown]
  - Wheezing [Unknown]

NARRATIVE: CASE EVENT DATE: 2013
